FAERS Safety Report 7813131-0 (Version None)
Quarter: 2011Q4

REPORT INFORMATION
  Report Type: 
  Country: None (occurrence: None)
  Receive Date: 20111013
  Receipt Date: 20110930
  Transmission Date: 20120403
  Serious: Yes (Hospitalization)
  Sender: FDA-Public Use
  Company Number: US-WATSON-2011-15721

PATIENT

DRUGS (8)
  1. PREMARIN [Concomitant]
     Indication: PROPHYLAXIS
  2. METRONIDAZOLE [Suspect]
     Indication: GASTROINTESTINAL DISORDER
     Dosage: 1 BID, TOOK TOTAL OF 2 DOSES
     Route: 048
     Dates: start: 20110825, end: 20110825
  3. LOSARTAN POTASSIUM [Suspect]
     Indication: HYPERTENSION
     Dosage: ONLY TOOK ONE DOSE
     Route: 048
     Dates: start: 20110703, end: 20110703
  4. NORVASC [Concomitant]
     Indication: BLOOD PRESSURE INCREASED
     Dosage: DAILY, ^FOR YEARS^
     Route: 048
  5. THYROID MEDICATION [Concomitant]
     Indication: HYPOTHYROIDISM
     Dosage: DAILY, ^FOR YEARS^
     Route: 048
  6. IBUPROFEN (ADVIL) [Concomitant]
     Indication: PRODUCT USED FOR UNKNOWN INDICATION
     Dosage: PRN
     Route: 048
  7. PREVACID [Concomitant]
     Indication: GASTROOESOPHAGEAL REFLUX DISEASE
     Dosage: DAILY, ^FOR YEARS^
     Route: 048
  8. PREMARIN [Concomitant]
     Indication: HORMONE REPLACEMENT THERAPY
     Dosage: ^LOWEST DOSE FOR 44 YEARS^
     Route: 048
     Dates: start: 19670101, end: 20110901

REACTIONS (15)
  - CEREBROVASCULAR ACCIDENT [None]
  - EUPHORIC MOOD [None]
  - INSOMNIA [None]
  - BLOOD PRESSURE INCREASED [None]
  - MALAISE [None]
  - PSYCHOMOTOR HYPERACTIVITY [None]
  - FACIAL ASYMMETRY [None]
  - SPEECH DISORDER [None]
  - DYSPHEMIA [None]
  - DYSARTHRIA [None]
  - REACTION TO DRUG EXCIPIENTS [None]
  - NAUSEA [None]
  - FEELING DRUNK [None]
  - FEELING ABNORMAL [None]
  - BLISTER [None]
